FAERS Safety Report 24103511 (Version 1)
Quarter: 2024Q3

REPORT INFORMATION
  Report Type: Report from Study
  Country: CR (occurrence: None)
  Receive Date: 20240717
  Receipt Date: 20240717
  Transmission Date: 20241017
  Serious: Yes (Other)
  Sender: ASTRAZENECA
  Company Number: 2020SE57777

PATIENT
  Age: 62 Year
  Sex: Female

DRUGS (4)
  1. SYMBICORT [Suspect]
     Active Substance: BUDESONIDE\FORMOTEROL FUMARATE DIHYDRATE
     Dosage: 160/4 MCG, UNKNOWN UNKNOWN
     Route: 055
  2. ATACAND [Suspect]
     Active Substance: CANDESARTAN CILEXETIL
     Indication: Hypertension
     Dosage: 16.0MG UNKNOWN
     Route: 048
  3. ATACAND [Suspect]
     Active Substance: CANDESARTAN CILEXETIL
     Indication: Hypertension
     Dosage: 8.0MG UNKNOWN
     Route: 048
  4. CRESTOR [Suspect]
     Active Substance: ROSUVASTATIN CALCIUM
     Dosage: 10.0MG UNKNOWN
     Route: 048

REACTIONS (2)
  - Deafness [Unknown]
  - Hypoacusis [Unknown]
